FAERS Safety Report 7503526-7 (Version None)
Quarter: 2011Q2

REPORT INFORMATION
  Report Type: 
  Country: None (occurrence: None)
  Receive Date: 20110525
  Receipt Date: 20110519
  Transmission Date: 20111010
  Serious: Yes (Hospitalization)
  Sender: FDA-Public Use
  Company Number: US-ROCHE-775857

PATIENT
  Sex: Male
  Weight: 90 kg

DRUGS (11)
  1. PEGINTERFERON ALFA-2A [Suspect]
     Route: 058
     Dates: start: 20100329, end: 20100614
  2. PLACEBO [Suspect]
     Dosage: BLINDED DRUG FOR 24 WEEKS.
     Route: 048
     Dates: start: 20101025
  3. RIBAVIRIN [Suspect]
     Dosage: FREQUENCY: EVERYDAY (QD),PERMANENTLY DISCONTINUED
     Route: 048
     Dates: start: 20101025, end: 20110425
  4. DIOVAN [Concomitant]
  5. TOPROL-XL [Concomitant]
  6. MORPHINE SULFATE [Concomitant]
     Dosage: REPORTED: MORPHINE SULPHATE EXTENDED RELEASE
  7. RO 5024048 (POLYMERASE INHIBITOR) [Suspect]
     Dosage: LAST DOSE PRIOR TO SAE 10 APR 2011.TREATMENT GROUP C
     Route: 048
     Dates: start: 20101025
  8. RIBAVIRIN [Suspect]
     Dosage: FREQUENCY: EVERYDAY (QD)
     Route: 048
     Dates: start: 20100329, end: 20100629
  9. TRAZODONE HCL [Concomitant]
  10. PEGINTERFERON ALFA-2A [Suspect]
     Dosage: LAST DOSE PRIOR TO SAE: 25 APRIL 2011,PERMANENTLY DISCONTINUED
     Route: 058
     Dates: start: 20101025, end: 20110425
  11. PLACEBO [Suspect]
     Route: 048
     Dates: start: 20100301

REACTIONS (1)
  - DIARRHOEA [None]
